FAERS Safety Report 24180722 (Version 1)
Quarter: 2024Q3

REPORT INFORMATION
  Report Type: Report from Study
  Country: ZA (occurrence: None)
  Receive Date: 20240806
  Receipt Date: 20240806
  Transmission Date: 20241016
  Serious: Yes (Hospitalization)
  Sender: ASTRAZENECA
  Company Number: 2023A085531

PATIENT
  Sex: Female

DRUGS (3)
  1. BUDESONIDE\FORMOTEROL [Suspect]
     Active Substance: BUDESONIDE\FORMOTEROL
     Dosage: 60 DOSE 160/4.5 MCG
     Route: 055
  2. DULOXETINE HYDROCHLORIDE [Concomitant]
     Active Substance: DULOXETINE HYDROCHLORIDE
     Dosage: 60.0MG UNKNOWN
  3. QUETIAPINE [Concomitant]
     Active Substance: QUETIAPINE
     Dosage: 25.0MG UNKNOWN

REACTIONS (1)
  - Meningitis [Unknown]
